FAERS Safety Report 8446219-4 (Version None)
Quarter: 2012Q2

REPORT INFORMATION
  Report Type: 
  Country: None (occurrence: None)
  Receive Date: 20120618
  Receipt Date: 20120614
  Transmission Date: 20120825
  Serious: Yes (Death)
  Sender: FDA-Public Use
  Company Number: AU-B.I. PHARMACEUTICALS,INC./RIDGEFIELD-2012-AU-00601AU

PATIENT
  Sex: Male

DRUGS (6)
  1. ATENOLOL [Concomitant]
     Dosage: 50 MG
  2. PRADAXA [Suspect]
     Indication: CEREBROVASCULAR ACCIDENT PROPHYLAXIS
     Dosage: 220 MG
     Dates: start: 20110905
  3. MONODUR [Concomitant]
     Dosage: 120 MG
  4. PRADAXA [Suspect]
     Indication: ATRIAL FIBRILLATION
  5. SIMVASTATIN [Concomitant]
     Dosage: 20 MG
  6. COVERSYL PLUS [Concomitant]
     Dosage: 5/1.25 MG

REACTIONS (1)
  - ACUTE MYOCARDIAL INFARCTION [None]
